FAERS Safety Report 16224296 (Version 1)
Quarter: 2019Q2

REPORT INFORMATION
  Report Type: Spontaneous
  Country: TR (occurrence: TR)
  Receive Date: 20190422
  Receipt Date: 20190422
  Transmission Date: 20190711
  Serious: Yes (Hospitalization)
  Sender: FDA-Public Use
  Company Number: TR-PERRIGO-19TR004886

PATIENT
  Age: 15 Year
  Sex: Female

DRUGS (1)
  1. DOXYLAMINE SUCCINATE. [Suspect]
     Active Substance: DOXYLAMINE SUCCINATE
     Indication: SUICIDE ATTEMPT
     Dosage: 2000 MG, SINGLE
     Route: 048

REACTIONS (4)
  - Dysarthria [Recovered/Resolved]
  - Seizure [Recovered/Resolved]
  - Intentional overdose [Recovered/Resolved]
  - Hallucination, visual [Recovered/Resolved]
